FAERS Safety Report 7357494-1 (Version None)
Quarter: 2011Q1

REPORT INFORMATION
  Report Type: 
  Country: None (occurrence: None)
  Receive Date: 20110317
  Receipt Date: 20110304
  Transmission Date: 20110831
  Serious: Yes (Other)
  Sender: FDA-Public Use
  Company Number: PHFR2010GB04560

PATIENT
  Sex: Female

DRUGS (2)
  1. AMOXICILLIN [Concomitant]
  2. CLOZARIL [Suspect]
     Indication: SCHIZOPHRENIA
     Dosage: UNK
     Route: 048
     Dates: start: 20030730

REACTIONS (3)
  - URINARY TRACT INFECTION [None]
  - VAGINAL DISCHARGE [None]
  - URINARY INCONTINENCE [None]
